FAERS Safety Report 10615979 (Version 3)
Quarter: 2015Q2

REPORT INFORMATION
  Report Type: Spontaneous
  Country: IT (occurrence: IT)
  Receive Date: 20141201
  Receipt Date: 20150420
  Transmission Date: 20150821
  Serious: Yes (Life-Threatening)
  Sender: FDA-Public Use
  Company Number: IT-SA-2014SA162041

PATIENT
  Age: 54 Year
  Sex: Female
  Weight: 52 kg

DRUGS (12)
  1. RIFADIN [Suspect]
     Active Substance: RIFAMPIN
     Indication: MEDIASTINITIS
     Route: 048
     Dates: start: 20141010, end: 20141020
  2. FERRO-GRAD [Concomitant]
     Active Substance: FERROUS SULFATE\FERROUS SULFATE, DRIED
     Indication: ANAEMIA
     Route: 048
     Dates: start: 20140801, end: 20141120
  3. PARACETAMOL [Concomitant]
     Active Substance: ACETAMINOPHEN
  4. CONGESCOR [Concomitant]
     Active Substance: BISOPROLOL
     Route: 048
     Dates: start: 20140801
  5. SINTROM [Concomitant]
     Active Substance: ACENOCOUMAROL
  6. BACTRIM [Suspect]
     Active Substance: SULFAMETHOXAZOLE\TRIMETHOPRIM
     Indication: MEDIASTINITIS
     Dosage: STRENGTH: 160 MG/800 MG
     Route: 048
     Dates: start: 20141010, end: 20141020
  7. CONGESCOR [Concomitant]
     Active Substance: BISOPROLOL
     Dosage: DOSE: REDUCED
     Route: 048
  8. LASIX [Concomitant]
     Active Substance: FUROSEMIDE
     Route: 048
  9. ANTIBIOTICS [Concomitant]
     Active Substance: UNSPECIFIED INGREDIENT
  10. FOLINA [Concomitant]
     Active Substance: FOLIC ACID
     Indication: ANAEMIA
     Dosage: STRENGTH: 5 MG
     Route: 048
     Dates: start: 20140801, end: 20141120
  11. CARDIOASPIRIN [Concomitant]
     Active Substance: ASPIRIN
     Route: 048
     Dates: start: 20140101
  12. BECOZYM [Concomitant]
     Active Substance: VITAMINS
     Indication: ANAEMIA
     Route: 048
     Dates: start: 20140801, end: 20141120

REACTIONS (5)
  - Hepatitis acute [Recovered/Resolved]
  - Stomatitis [Recovered/Resolved]
  - Tongue exfoliation [Unknown]
  - Skin exfoliation [Recovered/Resolved]
  - Leukopenia [Recovered/Resolved]

NARRATIVE: CASE EVENT DATE: 20141020
